FAERS Safety Report 18618387 (Version 1)
Quarter: 2020Q4

REPORT INFORMATION
  Report Type: Spontaneous
  Country: GB (occurrence: GB)
  Receive Date: 20201215
  Receipt Date: 20201215
  Transmission Date: 20210114
  Serious: Yes (Death)
  Sender: FDA-Public Use
  Company Number: NVSC2020GB331926

PATIENT
  Age: 79 Year

DRUGS (2)
  1. AMOXICILLIN. [Suspect]
     Active Substance: AMOXICILLIN
     Indication: PRODUCT USED FOR UNKNOWN INDICATION
     Dosage: 1 G (VIALS)
     Route: 042
     Dates: start: 202001
  2. AMOXICILLIN. [Suspect]
     Active Substance: AMOXICILLIN
     Dosage: UNK
     Route: 042
     Dates: start: 202011

REACTIONS (5)
  - Hypoxia [Unknown]
  - Cardiac arrest [Fatal]
  - Seizure [Recovered/Resolved]
  - Respiratory arrest [Unknown]
  - Loss of consciousness [Unknown]

NARRATIVE: CASE EVENT DATE: 202001
